FAERS Safety Report 10048058 (Version 1)
Quarter: 2014Q1

REPORT INFORMATION
  Report Type: Spontaneous
  Country: JP (occurrence: JP)
  Receive Date: 20140331
  Receipt Date: 20140331
  Transmission Date: 20141002
  Serious: Yes (Other)
  Sender: FDA-Public Use
  Company Number: JP-PFIZER INC-2014086383

PATIENT
  Age: 31 Year
  Sex: Male

DRUGS (1)
  1. INLYTA [Suspect]
     Dosage: UNK
     Route: 048
     Dates: start: 201403

REACTIONS (2)
  - Blood glucose increased [Unknown]
  - Glycosuria [Unknown]
